FAERS Safety Report 8616163-8 (Version None)
Quarter: 2012Q3

REPORT INFORMATION
  Report Type: 
  Country: None (occurrence: None)
  Receive Date: 20120823
  Receipt Date: 20120815
  Transmission Date: 20120928
  Serious: Yes (Disabling, Other)
  Sender: FDA-Public Use
  Company Number: US-009507513-1206USA04943

PATIENT

DRUGS (8)
  1. FOSAMAX [Suspect]
     Indication: OSTEOPOROSIS
     Dosage: 70 MG, UNK
     Route: 048
     Dates: start: 20051001, end: 20080101
  2. AREDIA [Suspect]
     Indication: OSTEOPOROSIS
     Dosage: 70 MG, QM3
     Route: 042
     Dates: start: 20080101, end: 20090801
  3. LIPITOR [Concomitant]
     Indication: BLOOD CHOLESTEROL INCREASED
  4. METFORMIN HCL [Concomitant]
     Indication: DIABETES MELLITUS
  5. AREDIA [Suspect]
     Indication: OSTEOPENIA
  6. ATENOLOL [Concomitant]
     Indication: HEART RATE INCREASED
  7. GLYBURIDE [Concomitant]
     Indication: DIABETES MELLITUS
  8. FOSAMAX [Suspect]
     Indication: OSTEOPENIA

REACTIONS (8)
  - OSTEOPOROSIS [None]
  - LIMB DEFORMITY [None]
  - FEMUR FRACTURE [None]
  - INTRAMEDULLARY ROD INSERTION [None]
  - STRESS FRACTURE [None]
  - FEMORAL NECK FRACTURE [None]
  - LOW TURNOVER OSTEOPATHY [None]
  - HIP FRACTURE [None]
